FAERS Safety Report 7585640-3 (Version None)
Quarter: 2011Q2

REPORT INFORMATION
  Report Type: 
  Country: None (occurrence: None)
  Receive Date: 20110624
  Receipt Date: 20110610
  Transmission Date: 20111010
  Serious: Yes (Disabling)
  Sender: FDA-Public Use
  Company Number: 2011MA007725

PATIENT
  Age: 65 Year
  Sex: Female

DRUGS (1)
  1. CITALOPRAM HYDROBROMIDE [Suspect]
     Indication: DEPRESSION
     Dosage: 5 MG,

REACTIONS (7)
  - EATING DISORDER [None]
  - HYPERHIDROSIS [None]
  - SUICIDAL IDEATION [None]
  - ANXIETY [None]
  - MUSCLE SPASMS [None]
  - PANIC DISORDER [None]
  - DEPRESSION [None]
